FAERS Safety Report 6080354-3 (Version None)
Quarter: 2009Q1

REPORT INFORMATION
  Report Type: 
  Country: None (occurrence: None)
  Receive Date: 20090217
  Receipt Date: 20090209
  Transmission Date: 20090719
  Serious: Yes (Other)
  Sender: FDA-Public Use
  Company Number: US-AMGEN-US330782

PATIENT
  Sex: Male
  Weight: 61.1 kg

DRUGS (10)
  1. NPLATE [Suspect]
     Indication: IDIOPATHIC THROMBOCYTOPENIC PURPURA
     Dates: start: 20081222
  2. ABACAVIR/LAMIVUDINE [Suspect]
     Dates: start: 20090128
  3. ATAZANAVIR [Suspect]
     Dates: start: 20090128
  4. TRIAZOLAM [Concomitant]
  5. METHADONE HCL [Concomitant]
     Route: 048
  6. ZANTAC [Concomitant]
     Route: 048
  7. ALPRAZOLAM [Concomitant]
  8. ALUPENT [Concomitant]
     Route: 055
  9. ESTAZOLAM [Concomitant]
  10. RESTORIL [Concomitant]

REACTIONS (1)
  - DRUG INEFFECTIVE [None]
